FAERS Safety Report 4291530-4 (Version None)
Quarter: 2004Q1

REPORT INFORMATION
  Report Type: 
  Country: None (occurrence: None)
  Receive Date: 20040126
  Receipt Date: 20030911
  Transmission Date: 20041129
  Serious: No
  Sender: FDA-Public Use
  Company Number: USA030947006

PATIENT
  Age: 64 Year
  Sex: Male

DRUGS (1)
  1. FORTEO [Suspect]
     Indication: SPINAL FRACTURE
     Dosage: UNK
     Route: 065
     Dates: start: 20030101

REACTIONS (1)
  - INJECTION SITE HAEMORRHAGE [None]
